FAERS Safety Report 10255251 (Version 1)
Quarter: 2014Q2

REPORT INFORMATION
  Report Type: Report from Study
  Country: NZ (occurrence: NZ)
  Receive Date: 20140624
  Receipt Date: 20140624
  Transmission Date: 20141212
  Serious: Yes (Hospitalization)
  Sender: FDA-Public Use
  Company Number: PHHY2014NZ077604

PATIENT
  Sex: Female

DRUGS (2)
  1. CLOZARIL [Suspect]
     Dosage: UKN
     Dates: start: 20100427
  2. CLOZARIL [Suspect]
     Dosage: UKN

REACTIONS (1)
  - Malaise [Recovered/Resolved]
